FAERS Safety Report 7763568-3 (Version None)
Quarter: 2011Q3

REPORT INFORMATION
  Report Type: 
  Country: None (occurrence: None)
  Receive Date: 20110920
  Receipt Date: 20110907
  Transmission Date: 20111222
  Serious: Yes (Death, Life-Threatening)
  Sender: FDA-Public Use
  Company Number: DE-GENENTECH-322332

PATIENT
  Sex: Male
  Weight: 92 kg

DRUGS (20)
  1. RANITIDINE [Concomitant]
     Indication: PREMEDICATION
     Dosage: UNK
     Dates: start: 20110630
  2. COTRIM DS [Concomitant]
     Indication: PROPHYLAXIS
     Dosage: 960 MG, 2/WEEK
     Route: 048
  3. METOPROLOL SUCCINATE [Concomitant]
     Indication: PRODUCT USED FOR UNKNOWN INDICATION
  4. AMLODIPINE [Concomitant]
     Indication: PRODUCT USED FOR UNKNOWN INDICATION
     Dosage: UNK
  5. BENDAMUSTINE [Suspect]
     Dosage: UNK
     Route: 042
     Dates: start: 20110601
  6. VINCRISTINE [Concomitant]
     Indication: NON-HODGKIN'S LYMPHOMA
     Dosage: UNK
     Dates: start: 20070101
  7. FOLSAN [Concomitant]
     Indication: PRODUCT USED FOR UNKNOWN INDICATION
     Dosage: 5 MG, UNK
     Route: 048
  8. RITUXIMAB [Suspect]
     Dosage: UNK
     Route: 042
     Dates: start: 20100101, end: 20100101
  9. BENDAMUSTINE [Suspect]
     Indication: NON-HODGKIN'S LYMPHOMA
     Dosage: UNK
     Route: 042
     Dates: start: 20100101, end: 20100101
  10. DOXORUBICIN HCL [Concomitant]
     Indication: NON-HODGKIN'S LYMPHOMA
     Dosage: UNK
     Dates: start: 20070101
  11. MARCUMAR [Concomitant]
     Indication: PRODUCT USED FOR UNKNOWN INDICATION
  12. RITUXIMAB [Suspect]
     Dosage: UNK
     Route: 042
     Dates: start: 20110630
  13. CYCLOPHOSPHAMIDE [Concomitant]
     Indication: NON-HODGKIN'S LYMPHOMA
     Dosage: UNK
     Dates: start: 20070101
  14. PREDNISONE [Concomitant]
     Indication: NON-HODGKIN'S LYMPHOMA
     Dosage: UNK
     Dates: start: 20070101
  15. CLEMASTINE FUMARATE [Concomitant]
     Indication: PREMEDICATION
     Dosage: UNK
     Dates: start: 20110630
  16. AMILORETIK [Concomitant]
     Indication: PRODUCT USED FOR UNKNOWN INDICATION
     Dosage: UNK
  17. ACETAMINOPHEN [Concomitant]
     Indication: PRODUCT USED FOR UNKNOWN INDICATION
     Dosage: UNK
     Dates: start: 20110630
  18. RITUXIMAB [Suspect]
     Indication: NON-HODGKIN'S LYMPHOMA
     Dosage: UNK
     Route: 042
     Dates: start: 20070101
  19. METOCLOPRAMIDE HYDROCHLORIDE [Concomitant]
     Indication: PREMEDICATION
     Dosage: 10 MG, UNK
     Dates: start: 20110630, end: 20110701
  20. BENDAMUSTINE [Suspect]
     Dosage: UNK
     Route: 042
     Dates: start: 20110701, end: 20110702

REACTIONS (7)
  - TUMOUR LYSIS SYNDROME [None]
  - BLOOD LACTATE DEHYDROGENASE INCREASED [None]
  - DYSPNOEA [None]
  - PLATELET COUNT DECREASED [None]
  - BRONCHOSPASM [None]
  - HAEMOLYSIS [None]
  - WHITE BLOOD CELL COUNT INCREASED [None]
